FAERS Safety Report 15638178 (Version 1)
Quarter: 2018Q4

REPORT INFORMATION
  Report Type: Spontaneous
  Country: US (occurrence: US)
  Receive Date: 20181120
  Receipt Date: 20181120
  Transmission Date: 20190205
  Serious: No
  Sender: FDA-Public Use
  Company Number: US-JNJFOC-20180738194

PATIENT
  Age: 76 Year
  Sex: Female

DRUGS (18)
  1. IMBRUVICA [Concomitant]
     Active Substance: IBRUTINIB
     Indication: CHRONIC LYMPHOCYTIC LEUKAEMIA
     Route: 048
     Dates: start: 20180105, end: 20180501
  2. CRANBERRY. [Concomitant]
     Active Substance: CRANBERRY
  3. ADVAIR HFA [Concomitant]
     Active Substance: FLUTICASONE PROPIONATE\SALMETEROL XINAFOATE
  4. BENADRYL [Concomitant]
     Active Substance: DIPHENHYDRAMINE HYDROCHLORIDE
  5. MYRBETRIQ [Concomitant]
     Active Substance: MIRABEGRON
  6. ASPIRIN. [Concomitant]
     Active Substance: ASPIRIN
  7. OMEPRAZOLE. [Concomitant]
     Active Substance: OMEPRAZOLE
  8. RESTASIS [Concomitant]
     Active Substance: CYCLOSPORINE
  9. OCUVITE [Concomitant]
     Active Substance: VITAMINS
  10. LISINOPRIL. [Concomitant]
     Active Substance: LISINOPRIL
  11. PREMARIN [Concomitant]
     Active Substance: ESTROGENS, CONJUGATED
  12. FLONASE [Concomitant]
     Active Substance: FLUTICASONE PROPIONATE
  13. LUTEIN [Concomitant]
     Active Substance: LUTEIN
  14. METOPROLOL. [Concomitant]
     Active Substance: METOPROLOL
  15. ACYCLOVIR. [Concomitant]
     Active Substance: ACYCLOVIR
  16. VENTOLIN [Concomitant]
     Active Substance: ALBUTEROL SULFATE
  17. VITAMIN D3 [Concomitant]
     Active Substance: CHOLECALCIFEROL
  18. IMBRUVICA [Suspect]
     Active Substance: IBRUTINIB
     Indication: CHRONIC LYMPHOCYTIC LEUKAEMIA
     Route: 048
     Dates: start: 20180502

REACTIONS (1)
  - Urinary tract infection [Not Recovered/Not Resolved]

NARRATIVE: CASE EVENT DATE: 20180722
